FAERS Safety Report 8879002 (Version 1)
Quarter: 2012Q4

REPORT INFORMATION
  Report Type: 
  Country: CA (occurrence: CA)
  Receive Date: 20121026
  Receipt Date: 20121026
  Transmission Date: 20130627
  Serious: Yes (Hospitalization, Other)
  Sender: FDA-Public Use
  Company Number: PHHY2012CA014065

PATIENT
  Age: 45 None
  Sex: Female

DRUGS (5)
  1. GILENYA [Suspect]
     Indication: RELAPSING-REMITTING MULTIPLE SCLEROSIS
     Dosage: 0.5 mg, daily
     Route: 048
     Dates: start: 20111213, end: 20120612
  2. CARBAMAZEPINE [Concomitant]
     Dates: start: 20120525
  3. BACLOFEN [Concomitant]
     Dates: start: 20120328
  4. IBUPROFEN [Concomitant]
     Dates: start: 20110131
  5. DETROL [Concomitant]
     Dates: start: 20100324

REACTIONS (19)
  - Multiple sclerosis relapse [Recovering/Resolving]
  - Gait disturbance [Recovering/Resolving]
  - Muscular weakness [Recovering/Resolving]
  - Disturbance in attention [Recovering/Resolving]
  - Muscle spasticity [Recovering/Resolving]
  - Visual impairment [Recovering/Resolving]
  - Sensory loss [Recovering/Resolving]
  - Urinary retention [Recovering/Resolving]
  - Bladder irritation [Recovering/Resolving]
  - Fatigue [Recovered/Resolved]
  - Central nervous system lesion [Unknown]
  - Convulsion [Recovering/Resolving]
  - Chills [Recovered/Resolved]
  - Feeling abnormal [Recovering/Resolving]
  - Fall [Recovering/Resolving]
  - Musculoskeletal pain [Recovering/Resolving]
  - Contusion [Recovering/Resolving]
  - Nausea [Recovering/Resolving]
  - Migraine [Recovering/Resolving]
